FAERS Safety Report 5744116-6 (Version None)
Quarter: 2008Q2

REPORT INFORMATION
  Report Type: 
  Country: None (occurrence: None)
  Receive Date: 20080520
  Receipt Date: 20080509
  Transmission Date: 20081010
  Serious: Yes (Other)
  Sender: FDA-Public Use
  Company Number: B0511404A

PATIENT
  Age: 20 Year
  Sex: Female

DRUGS (3)
  1. VALTREX [Suspect]
     Indication: HERPES ZOSTER
     Dosage: 1000MG THREE TIMES PER DAY
     Route: 048
     Dates: start: 20070516, end: 20070521
  2. LAMISIL [Concomitant]
     Route: 065
     Dates: start: 20070516, end: 20070517
  3. ALLELOCK [Concomitant]
     Route: 048
     Dates: start: 20070516, end: 20070521

REACTIONS (2)
  - ACUTE GENERALISED EXANTHEMATOUS PUSTULOSIS [None]
  - PYREXIA [None]
